FAERS Safety Report 7803201-5 (Version None)
Quarter: 2011Q4

REPORT INFORMATION
  Report Type: 
  Country: None (occurrence: None)
  Receive Date: 20111007
  Receipt Date: 20111003
  Transmission Date: 20120403
  Serious: Yes (Other)
  Sender: FDA-Public Use
  Company Number: US-PFIZER INC-2011156759

PATIENT
  Sex: Male
  Weight: 13 kg

DRUGS (2)
  1. PHOSPHOLINE IODIDE [Suspect]
     Indication: GLAUCOMA
     Dosage: UNK, 2X/DAY
     Dates: start: 20110301, end: 20110701
  2. COSOPT [Concomitant]
     Indication: GLAUCOMA
     Dosage: UNK

REACTIONS (1)
  - VISUAL ACUITY REDUCED [None]
